FAERS Safety Report 9822048 (Version 2)
Quarter: 2020Q4

REPORT INFORMATION
  Report Type: Spontaneous
  Country: IR (occurrence: IR)
  Receive Date: 20140116
  Receipt Date: 20201127
  Transmission Date: 20210114
  Serious: Yes (Other)
  Sender: FDA-Public Use
  Company Number: IR-SA-2014SA003889

PATIENT
  Age: 27 Year
  Sex: Male

DRUGS (3)
  1. ZOLPIDEM TARTRATE. [Suspect]
     Active Substance: ZOLPIDEM TARTRATE
     Indication: INSOMNIA
     Dosage: PRN USE OF ZOLPIDEM 5 TO MAXIMUM OF 15 MG DURING THE LAST YEAR
     Route: 065
  2. ZOLPIDEM TARTRATE. [Suspect]
     Active Substance: ZOLPIDEM TARTRATE
     Dosage: AFTER TAKING 20 MG OF ZOLPIDEM AT FIRST AND BEGINNING THE EFFECT OF THE USED ZOLPIDEM IN A FEW MINUT
  3. ZOLPIDEM TARTRATE. [Suspect]
     Active Substance: ZOLPIDEM TARTRATE
     Dosage: ONE NIGHT, AFTER A RUSH OF ANNOYING THOUGHTS, WITH A GREAT DESIRE FOR ZOLPIDEM, HE TOOK TWO PILLS OF

REACTIONS (18)
  - Suicide attempt [Unknown]
  - Body temperature increased [Unknown]
  - Headache [Unknown]
  - Overdose [Unknown]
  - Nightmare [Unknown]
  - Drug abuse [Unknown]
  - Hangover [Unknown]
  - Hallucination, visual [Unknown]
  - Logorrhoea [Unknown]
  - Nausea [Unknown]
  - Skin odour abnormal [Unknown]
  - Insomnia [Unknown]
  - Dysgeusia [Unknown]
  - Dizziness [Unknown]
  - Abdominal pain [Unknown]
  - Seborrhoea [Unknown]
  - Skin discolouration [Unknown]
  - Vomiting [Unknown]
